FAERS Safety Report 24362086 (Version 1)
Quarter: 2024Q3

REPORT INFORMATION
  Report Type: Spontaneous
  Country: DE (occurrence: DE)
  Receive Date: 20240925
  Receipt Date: 20240925
  Transmission Date: 20241016
  Serious: Yes (Other)
  Sender: NOVARTIS
  Company Number: DE-002147023-NVSC2024DE190155

PATIENT
  Sex: Female

DRUGS (1)
  1. GILENYA [Suspect]
     Active Substance: FINGOLIMOD HYDROCHLORIDE
     Indication: Multiple sclerosis
     Dosage: UNK 1 CAPSULE (1 X )
     Route: 065
     Dates: start: 2014

REACTIONS (3)
  - Intracranial aneurysm [Unknown]
  - Dysphagia [Unknown]
  - Off label use [Unknown]
